FAERS Safety Report 10186097 (Version 1)
Quarter: 2014Q2

REPORT INFORMATION
  Report Type: Spontaneous
  Country: RU (occurrence: RU)
  Receive Date: 20140521
  Receipt Date: 20140521
  Transmission Date: 20141212
  Serious: Yes (Other)
  Sender: FDA-Public Use
  Company Number: RU-ASTRAZENECA-2014SE33241

PATIENT
  Age: 37 Year
  Sex: Female

DRUGS (1)
  1. EMLA [Suspect]
     Indication: THERAPEUTIC PROCEDURE
     Route: 061

REACTIONS (2)
  - Hypertensive crisis [Recovered/Resolved]
  - Malaise [Unknown]
